FAERS Safety Report 6398883-1 (Version None)
Quarter: 2009Q4

REPORT INFORMATION
  Report Type: 
  Country: None (occurrence: None)
  Receive Date: 20091013
  Receipt Date: 20090930
  Transmission Date: 20100525
  Serious: Yes (Other)
  Sender: FDA-Public Use
  Company Number: PHEH2009US13338

PATIENT
  Sex: Female

DRUGS (15)
  1. RECLAST [Suspect]
     Indication: OSTEOPOROSIS
     Dosage: UNK
     Dates: start: 20090901
  2. RECLAST [Suspect]
     Indication: OSTEOMALACIA
  3. RECLAST [Suspect]
     Indication: OSTEOPENIA
  4. BONIVA [Suspect]
     Indication: OSTEOPOROSIS
     Dosage: UNK
  5. BONIVA [Suspect]
     Indication: OSTEOMALACIA
  6. BONIVA [Suspect]
     Indication: OSTEOPENIA
  7. ADVAIR DISKUS 100/50 [Concomitant]
     Dosage: UNK
  8. SINGULAIR [Concomitant]
     Dosage: UNK
  9. ALBUTEROL [Concomitant]
     Dosage: UNK
  10. FLEXERIL [Concomitant]
     Dosage: UNK
  11. XANAX [Concomitant]
     Dosage: UNK
  12. VITAMIN D [Concomitant]
     Dosage: UNK
  13. ZANTAC [Concomitant]
     Dosage: UNK
  14. ESTRADIOL [Concomitant]
     Dosage: UNK
  15. MORPHINE [Concomitant]
     Dosage: UNK

REACTIONS (10)
  - ABASIA [None]
  - BACK PAIN [None]
  - BONE PAIN [None]
  - CHEST DISCOMFORT [None]
  - COMPRESSION FRACTURE [None]
  - FEELING COLD [None]
  - GASTROOESOPHAGEAL REFLUX DISEASE [None]
  - NAUSEA [None]
  - PAIN IN EXTREMITY [None]
  - RIB FRACTURE [None]
